FAERS Safety Report 16866647 (Version 1)
Quarter: 2019Q3

REPORT INFORMATION
  Report Type: Spontaneous
  Country: US (occurrence: US)
  Receive Date: 20190930
  Receipt Date: 20190930
  Transmission Date: 20191005
  Serious: No
  Sender: FDA-Public Use
  Company Number: US-BIOGEN-2018BI00584988

PATIENT
  Sex: Female

DRUGS (3)
  1. AVONEX [Suspect]
     Active Substance: INTERFERON BETA-1A
     Indication: MULTIPLE SCLEROSIS
     Route: 050
     Dates: start: 20160119
  2. AVONEX [Suspect]
     Active Substance: INTERFERON BETA-1A
     Route: 065
     Dates: start: 20120307, end: 20190101
  3. AUBAGIO [Suspect]
     Active Substance: TERIFLUNOMIDE
     Route: 050

REACTIONS (6)
  - Nausea [Unknown]
  - Headache [Unknown]
  - Multiple sclerosis relapse [Unknown]
  - Fall [Recovered/Resolved]
  - Mobility decreased [Unknown]
  - Influenza like illness [Unknown]
